FAERS Safety Report 20428036 (Version 1)
Quarter: 2022Q1

REPORT INFORMATION
  Report Type: Spontaneous
  Country: NL (occurrence: NL)
  Receive Date: 20220204
  Receipt Date: 20220204
  Transmission Date: 20220423
  Serious: Yes (Other)
  Sender: FDA-Public Use
  Company Number: NL-TEVA-2022-NL-1998979

PATIENT
  Age: 58 Year
  Sex: Male

DRUGS (4)
  1. DEXAMETHASONE [Suspect]
     Active Substance: DEXAMETHASONE
     Indication: COVID-19 pneumonia
     Route: 065
     Dates: start: 2021, end: 2021
  2. TOCILIZUMAB [Suspect]
     Active Substance: TOCILIZUMAB
     Indication: COVID-19 pneumonia
     Dosage: ON THE DAY OF INTUBATION
     Route: 065
     Dates: start: 2021
  3. NEOSTIGMINE [Concomitant]
     Active Substance: NEOSTIGMINE
     Indication: Abdominal distension
     Dosage: DOSE: 2 MG/H
     Dates: start: 2021, end: 2021
  4. NEOSTIGMINE [Concomitant]
     Active Substance: NEOSTIGMINE
     Indication: Constipation

REACTIONS (3)
  - Gastrointestinal necrosis [Recovered/Resolved]
  - Intestinal ischaemia [Recovered/Resolved]
  - Abdominal abscess [Recovered/Resolved]

NARRATIVE: CASE EVENT DATE: 20210101
